FAERS Safety Report 8188445 (Version 8)
Quarter: 2014Q2

REPORT INFORMATION
  Report Type: Spontaneous
  Country: US (occurrence: US)
  Receive Date: 20111019
  Receipt Date: 20140627
  Transmission Date: 20141212
  Serious: Yes (Death, Hospitalization)
  Sender: FDA-Public Use
  Company Number: US-JNJFOC-20111005707

PATIENT
  Age: 55 Year
  Sex: Male
  Weight: 104.33 kg

DRUGS (6)
  1. EXTRA STRENGTH TYLENOL [Suspect]
     Route: 048
  2. EXTRA STRENGTH TYLENOL [Suspect]
     Indication: MUSCULOSKELETAL PAIN
     Dosage: 6-8
     Route: 048
     Dates: start: 201101, end: 20110117
  3. FLAXSEED OIL [Concomitant]
  4. NYQUIL [Concomitant]
     Indication: INFLUENZA
     Route: 065
  5. LASIX [Concomitant]
     Indication: PRODUCT USED FOR UNKNOWN INDICATION
  6. ADVAIR [Concomitant]
     Indication: PRODUCT USED FOR UNKNOWN INDICATION

REACTIONS (7)
  - Toxicity to various agents [Fatal]
  - Renal failure [Unknown]
  - Multi-organ failure [Fatal]
  - Drug abuse [Fatal]
  - Atrial fibrillation [Unknown]
  - Acute hepatic failure [Fatal]
  - Overdose [Fatal]
